FAERS Safety Report 16203323 (Version 4)
Quarter: 2019Q3

REPORT INFORMATION
  Report Type: Other
  Country: CA (occurrence: CA)
  Receive Date: 20190416
  Receipt Date: 20190918
  Transmission Date: 20191004
  Serious: Yes (Other)
  Sender: FDA-Public Use
  Company Number: CA-BECTON DICKINSON-2019BDN00155

PATIENT
  Age: 42 Year
  Sex: Female
  Weight: 81 kg

DRUGS (37)
  1. CHLORHEXIDINE [Suspect]
     Active Substance: CHLORHEXIDINE
  2. LEFLUNOMIDE. [Suspect]
     Active Substance: LEFLUNOMIDE
  3. OXYCODONE HYDROCHLORIDE. [Suspect]
     Active Substance: OXYCODONE HYDROCHLORIDE
  4. ZOPICLONE [Concomitant]
     Active Substance: ZOPICLONE
  5. ENBREL [Suspect]
     Active Substance: ETANERCEPT
     Indication: RHEUMATOID ARTHRITIS
     Route: 058
  6. ERGOCALCIFEROL. [Concomitant]
     Active Substance: ERGOCALCIFEROL
  7. REACTINE [Concomitant]
  8. TYLENOL [Concomitant]
     Active Substance: ACETAMINOPHEN
  9. VITAMIN C [Concomitant]
     Active Substance: ASCORBIC ACID
  10. D-ALPHA TOCOPHEROL [Concomitant]
     Active Substance: .ALPHA.-TOCOPHEROL, D-
  11. ORENCIA [Suspect]
     Active Substance: ABATACEPT
  12. PERIOGARD [Suspect]
     Active Substance: CHLORHEXIDINE GLUCONATE
  13. PANTOLOC [Concomitant]
     Active Substance: PANTOPRAZOLE SODIUM
  14. CHOLECALCIFEROL [Concomitant]
     Active Substance: CHOLECALCIFEROL
  15. METHOTREXATE. [Suspect]
     Active Substance: METHOTREXATE
  16. PLAQUENIL [Concomitant]
     Active Substance: HYDROXYCHLOROQUINE SULFATE
  17. VENTOLIN [Concomitant]
     Active Substance: ALBUTEROL SULFATE
  18. ACETAMINOPHEN; OXYCODONE HYDROCHLORIDE; OXYCODONE TEREPHTHALATE [Suspect]
     Active Substance: ACETAMINOPHEN\OXYCODONE HYDROCHLORIDE\OXYCODONE TEREPHTHALATE
  19. ACTEMRA [Suspect]
     Active Substance: TOCILIZUMAB
  20. ARAVA [Suspect]
     Active Substance: LEFLUNOMIDE
  21. CAMELLIA SINENSIS; D-ALPHA TOCOPHEROL; FISH OIL; VITAMIN D3 [Concomitant]
  22. HYDROXYCHLOROQUINE [Concomitant]
     Active Substance: HYDROXYCHLOROQUINE
  23. PANTOPRAZOLE [Concomitant]
     Active Substance: PANTOPRAZOLE
  24. GREEN TEA TINCTURE [Concomitant]
  25. CIMZIA [Suspect]
     Active Substance: CERTOLIZUMAB PEGOL
     Indication: RHEUMATOID ARTHRITIS
     Dosage: 400 MG, CYCLICAL
     Route: 058
  26. OXYCODONE TEREPHTHALATE [Suspect]
     Active Substance: OXYCODONE TEREPHTHALATE
  27. OXYCODONE [Suspect]
     Active Substance: OXYCODONE
  28. IBUPROFEN. [Concomitant]
     Active Substance: IBUPROFEN
  29. PANTOPRAZOLE SODIUM ANHYDROUS [Concomitant]
     Active Substance: PANTOPRAZOLE SODIUM ANHYDROUS
  30. ACETAMINOPHEN. [Suspect]
     Active Substance: ACETAMINOPHEN
  31. DESOGESTREL; ETHINYL ESTRADIOL [Concomitant]
  32. FISH OIL [Concomitant]
     Active Substance: FISH OIL
  33. VITAMIN D3 [Concomitant]
     Active Substance: CHOLECALCIFEROL
  34. CETIRIZINE [Concomitant]
     Active Substance: CETIRIZINE HYDROCHLORIDE
  35. SIMPONI [Suspect]
     Active Substance: GOLIMUMAB
     Route: 058
  36. COENZYME Q10 [Concomitant]
     Active Substance: UBIDECARENONE
  37. PREDNISONE. [Concomitant]
     Active Substance: PREDNISONE

REACTIONS (20)
  - Pruritus generalised [Unknown]
  - Respiratory disorder [Unknown]
  - Vomiting [Unknown]
  - Sinusitis [Unknown]
  - Body temperature increased [Unknown]
  - Rash [Unknown]
  - Abdominal pain upper [Unknown]
  - Night sweats [Unknown]
  - Pain [Unknown]
  - Diarrhoea [Unknown]
  - Headache [Unknown]
  - Lower respiratory tract infection [Unknown]
  - Muscle spasticity [Unknown]
  - Peripheral swelling [Unknown]
  - Back pain [Unknown]
  - Asthenia [Unknown]
  - Ear pain [Unknown]
  - Insomnia [Unknown]
  - Joint swelling [Unknown]
  - Urticaria [Unknown]
